FAERS Safety Report 6079748-1 (Version None)
Quarter: 2009Q1

REPORT INFORMATION
  Report Type: 
  Country: None (occurrence: None)
  Receive Date: 20090211
  Receipt Date: 20090210
  Transmission Date: 20090719
  Serious: Yes (Hospitalization)
  Sender: FDA-Public Use
  Company Number: GRT 2008-10358 (FOLLOW-UP #5)

PATIENT
  Age: 80 Year
  Sex: Female

DRUGS (8)
  1. LIDOCAINE [Suspect]
     Indication: POST HERPETIC NEURALGIA
     Dates: start: 20031010, end: 20080204
  2. ENALAPRIL [Concomitant]
  3. ADIRO [Concomitant]
  4. ATENOLOL [Concomitant]
  5. SEGURIL [Concomitant]
  6. AMERIDE [Concomitant]
  7. TRANGOREX [Concomitant]
  8. OMEPRAZOLE [Concomitant]

REACTIONS (5)
  - ACUTE CORONARY SYNDROME [None]
  - ACUTE MYOCARDIAL INFARCTION [None]
  - ATRIAL FIBRILLATION [None]
  - DIVERTICULUM INTESTINAL [None]
  - GASTRITIS EROSIVE [None]
